FAERS Safety Report 8981507 (Version 1)
Quarter: 2012Q4

REPORT INFORMATION
  Report Type: 
  Country: IR (occurrence: IR)
  Receive Date: 20121221
  Receipt Date: 20121221
  Transmission Date: 20130627
  Serious: Yes (Other)
  Sender: FDA-Public Use
  Company Number: IR-COVIDIEN/TYCO HEALTHCARE/MALLINCKRODT-T201204327

PATIENT
  Age: 1 Day
  Sex: Female
  Weight: 2.95 kg

DRUGS (1)
  1. TRAMADOL [Suspect]
     Dosage: UNK

REACTIONS (2)
  - Foetal exposure during pregnancy [Recovered/Resolved]
  - Drug withdrawal syndrome neonatal [Recovered/Resolved]
